FAERS Safety Report 5753211-7 (Version None)
Quarter: 2008Q2

REPORT INFORMATION
  Report Type: 
  Country: None (occurrence: None)
  Receive Date: 20080530
  Receipt Date: 20080409
  Transmission Date: 20081010
  Serious: No
  Sender: FDA-Public Use
  Company Number: US-KINGPHARMUSA00001-K200800429

PATIENT

DRUGS (2)
  1. CORTISPORIN [Suspect]
     Dosage: UNK, SINGLE
     Dates: start: 20080409, end: 20080409
  2. UNSPECIFIED CONTRACEPTIVE [Concomitant]
     Route: 048

REACTIONS (3)
  - DRUG DISPENSING ERROR [None]
  - EYE IRRITATION [None]
  - INCORRECT ROUTE OF DRUG ADMINISTRATION [None]
